FAERS Safety Report 16879015 (Version 1)
Quarter: 2019Q4

REPORT INFORMATION
  Report Type: Spontaneous
  Country: US (occurrence: US)
  Receive Date: 20191002
  Receipt Date: 20191002
  Transmission Date: 20200122
  Serious: Yes (Other)
  Sender: FDA-Public Use
  Company Number: US-MALLINCKRODT-T201906650

PATIENT
  Age: 28 Year
  Sex: Female

DRUGS (1)
  1. UVADEX [Suspect]
     Active Substance: METHOXSALEN
     Indication: HEART TRANSPLANT REJECTION
     Dosage: UNK, EXTRACORPOREAL
     Route: 050

REACTIONS (4)
  - Hip arthroplasty [Unknown]
  - Product use in unapproved indication [Unknown]
  - Osteonecrosis [Unknown]
  - Apheresis related complication [Unknown]
